FAERS Safety Report 6264713-1 (Version None)
Quarter: 2009Q3

REPORT INFORMATION
  Report Type: 
  Country: None (occurrence: None)
  Receive Date: 20090710
  Receipt Date: 20090703
  Transmission Date: 20100115
  Serious: Yes (Hospitalization)
  Sender: FDA-Public Use
  Company Number: FI-ABBOTT-09P-055-0574380-00

PATIENT
  Sex: Female

DRUGS (5)
  1. HUMIRA [Suspect]
     Indication: CROHN'S DISEASE
     Route: 058
     Dates: start: 20060921, end: 20070401
  2. HUMIRA [Suspect]
     Route: 058
     Dates: start: 20070401, end: 20080801
  3. HUMIRA [Suspect]
     Route: 058
     Dates: start: 20080801
  4. HUMIRA [Suspect]
     Dates: start: 20080101, end: 20090510
  5. HUMIRA [Suspect]
     Route: 058
     Dates: start: 20090607, end: 20090607

REACTIONS (7)
  - ANAEMIA [None]
  - C-REACTIVE PROTEIN INCREASED [None]
  - DRUG INEFFECTIVE [None]
  - INTESTINAL FISTULA [None]
  - LEUKOPENIA [None]
  - PYREXIA [None]
  - SEPSIS [None]
